FAERS Safety Report 6195988-5 (Version None)
Quarter: 2009Q2

REPORT INFORMATION
  Report Type: 
  Country: None (occurrence: None)
  Receive Date: 20090520
  Receipt Date: 20090508
  Transmission Date: 20091009
  Serious: Yes (Hospitalization, Other)
  Sender: FDA-Public Use
  Company Number: GB-AVENTIS-200915029GDDC

PATIENT

DRUGS (1)
  1. RIFATER [Suspect]

REACTIONS (1)
  - DYSPHAGIA [None]
